FAERS Safety Report 10593726 (Version 2)
Quarter: 2014Q4

REPORT INFORMATION
  Report Type: Spontaneous
  Country: SE (occurrence: SE)
  Receive Date: 20141119
  Receipt Date: 20141201
  Transmission Date: 20150529
  Serious: Yes (Other)
  Sender: FDA-Public Use
  Company Number: SE-ELI_LILLY_AND_COMPANY-SE201411003970

PATIENT
  Age: 16 Year
  Sex: Female

DRUGS (5)
  1. THERALEN [Concomitant]
     Active Substance: TRIMEPRAZINE
  2. LEVONORGESTREL. [Concomitant]
     Active Substance: LEVONORGESTREL
  3. ZYPREXA [Suspect]
     Active Substance: OLANZAPINE
     Dosage: 5 MG, QD
     Route: 048
     Dates: start: 20130429, end: 20130813
  4. ZYPREXA [Suspect]
     Active Substance: OLANZAPINE
     Indication: HYPOMANIA
     Dosage: 2.5 MG, QD
     Route: 048
     Dates: start: 20130429, end: 20130813
  5. ZYPREXA [Suspect]
     Active Substance: OLANZAPINE
     Indication: PSYCHOTIC DISORDER
     Dosage: 10 MG, QD
     Route: 048
     Dates: start: 20130416

REACTIONS (4)
  - Weight increased [Recovered/Resolved]
  - Blood thyroid stimulating hormone increased [Recovered/Resolved]
  - Hypercholesterolaemia [Recovered/Resolved]
  - Hyperinsulinaemia [Recovered/Resolved]

NARRATIVE: CASE EVENT DATE: 20130812
